FAERS Safety Report 9008813 (Version 1)
Quarter: 2013Q1

REPORT INFORMATION
  Report Type: Spontaneous
  Country: US (occurrence: US)
  Receive Date: 20130111
  Receipt Date: 20130111
  Transmission Date: 20140127
  Serious: Yes (Death)
  Sender: FDA-Public Use
  Company Number: US-BRISTOL-MYERS SQUIBB COMPANY-17277559

PATIENT
  Age: 46 Year
  Sex: Female

DRUGS (1)
  1. NULOJIX [Suspect]

REACTIONS (1)
  - Cardiac arrest [Fatal]
